FAERS Safety Report 13947938 (Version 1)
Quarter: 2017Q3

REPORT INFORMATION
  Report Type: Spontaneous
  Country: US (occurrence: US)
  Receive Date: 20170908
  Receipt Date: 20170908
  Transmission Date: 20171128
  Serious: No
  Sender: FDA-Public Use
  Company Number: US-PFIZER INC-2017388855

PATIENT
  Age: 63 Year
  Sex: Male

DRUGS (2)
  1. XELJANZ XR [Suspect]
     Active Substance: TOFACITINIB CITRATE
     Dosage: 11 MG, UNK
  2. METHOTREXATE SODIUM. [Suspect]
     Active Substance: METHOTREXATE SODIUM
     Dosage: 20 MG, WEEKLY, (20MG/WK)
     Route: 051

REACTIONS (13)
  - Arthralgia [Unknown]
  - Cough [Unknown]
  - Joint swelling [Unknown]
  - Alopecia [Unknown]
  - Muscular weakness [Unknown]
  - Dizziness [Unknown]
  - Pain in extremity [Unknown]
  - Dry eye [Unknown]
  - Tremor [Unknown]
  - Onychoclasis [Unknown]
  - Peripheral swelling [Unknown]
  - Fatigue [Unknown]
  - Musculoskeletal stiffness [Unknown]
